FAERS Safety Report 7982802-8 (Version None)
Quarter: 2011Q4

REPORT INFORMATION
  Report Type: 
  Country: None (occurrence: None)
  Receive Date: 20111215
  Receipt Date: 20111206
  Transmission Date: 20120403
  Serious: Yes (Hospitalization)
  Sender: FDA-Public Use
  Company Number: US-BAYER-2011-056539

PATIENT
  Sex: Female
  Weight: 118 kg

DRUGS (2)
  1. IBUPROFEN [Concomitant]
  2. YASMIN [Suspect]
     Indication: CONTRACEPTION
     Dosage: UNK
     Dates: start: 20050601, end: 20050901

REACTIONS (9)
  - PAIN IN EXTREMITY [None]
  - ANXIETY [None]
  - DEEP VEIN THROMBOSIS [None]
  - EMOTIONAL DISTRESS [None]
  - DYSPNOEA [None]
  - OEDEMA PERIPHERAL [None]
  - INJURY [None]
  - MENTAL DISORDER [None]
  - PULMONARY EMBOLISM [None]
